FAERS Safety Report 8523711-5 (Version None)
Quarter: 2012Q3

REPORT INFORMATION
  Report Type: 
  Country: None (occurrence: None)
  Receive Date: 20120720
  Receipt Date: 20120711
  Transmission Date: 20120928
  Serious: Yes (Hospitalization)
  Sender: FDA-Public Use
  Company Number: JP-EISAI INC-E7389-01389-SPO-JP

PATIENT
  Age: 56 Year
  Sex: Female
  Weight: 65 kg

DRUGS (8)
  1. HALAVEN [Suspect]
  2. BROCIN CODEINE [Concomitant]
     Route: 048
  3. PL (NON-PYRINE COLD PREPARATION) [Concomitant]
     Route: 048
  4. LEVOFLOXACIN [Concomitant]
  5. HALAVEN [Suspect]
     Indication: BREAST CANCER RECURRENT
     Route: 042
     Dates: start: 20110804, end: 20110811
  6. CLARITHROMYCIN [Concomitant]
     Route: 048
  7. HALAVEN [Suspect]
     Indication: METASTASES TO LUNG
  8. HALAVEN [Suspect]
     Indication: METASTASES TO BONE

REACTIONS (1)
  - PLEURAL EFFUSION [None]
